FAERS Safety Report 24129729 (Version 1)
Quarter: 2024Q3

REPORT INFORMATION
  Report Type: Spontaneous
  Country: AT (occurrence: AT)
  Receive Date: 20240724
  Receipt Date: 20240724
  Transmission Date: 20241016
  Serious: Yes (Other)
  Sender: ROCHE
  Company Number: None

PATIENT
  Sex: Male

DRUGS (4)
  1. AVASTIN [Suspect]
     Active Substance: BEVACIZUMAB
     Indication: Hepatic cancer metastatic
     Dosage: UNK
     Route: 065
     Dates: start: 20240202
  2. IRINOTECAN [Suspect]
     Active Substance: IRINOTECAN
     Indication: Hepatic cancer metastatic
     Dosage: UNK
     Route: 065
     Dates: start: 20240202
  3. LEUCOVORIN [Suspect]
     Active Substance: LEUCOVORIN\LEUCOVORIN CALCIUM
     Indication: Hepatic cancer metastatic
     Dosage: UNK
     Route: 065
     Dates: start: 20240202
  4. FLUOROURACIL [Suspect]
     Active Substance: FLUOROURACIL
     Indication: Hepatic cancer metastatic
     Dosage: UNK
     Route: 065
     Dates: start: 20240202

REACTIONS (4)
  - Hepatomegaly [Unknown]
  - Metastases to lung [Unknown]
  - Metastases to lymph nodes [Unknown]
  - Metastases to lung [Unknown]
